FAERS Safety Report 6333674-9 (Version None)
Quarter: 2009Q3

REPORT INFORMATION
  Report Type: 
  Country: None (occurrence: None)
  Receive Date: 20090829
  Receipt Date: 20090520
  Transmission Date: 20100115
  Serious: No
  Sender: FDA-Public Use
  Company Number: US-ABBOTT-09P-163-0574706-00

PATIENT
  Sex: Male
  Weight: 141.65 kg

DRUGS (3)
  1. SIMCOR [Suspect]
     Indication: DRUG USE FOR UNKNOWN INDICATION
     Dosage: 500/20 MILLIGRAMS
     Dates: start: 20090515
  2. ASPIRIN [Concomitant]
     Indication: DRUG USE FOR UNKNOWN INDICATION
     Route: 048
  3. UNKNOWN ANTI-HYPERTENSIVE MEDICATION [Concomitant]
     Indication: HYPERTENSION
     Route: 048

REACTIONS (1)
  - SKIN BURNING SENSATION [None]
